FAERS Safety Report 7954165-5 (Version None)
Quarter: 2011Q4

REPORT INFORMATION
  Report Type: 
  Country: None (occurrence: None)
  Receive Date: 20111129
  Receipt Date: 20111117
  Transmission Date: 20120403
  Serious: Yes (Hospitalization)
  Sender: FDA-Public Use
  Company Number: 1112215

PATIENT
  Age: 43 Year
  Sex: Male

DRUGS (3)
  1. BUSULFAN [Suspect]
     Indication: STEM CELL TRANSPLANT
     Dosage: NOT REPORTED, NOT REPORTED, UNKNOWN, (UNKNOWN)
  2. RITUXAN [Concomitant]
  3. NIPENT [Suspect]
     Indication: STEM CELL TRANSPLANT
     Dosage: NOT REPORTED, NOT REPORTED, UNKNOWN, (UNKNOWN)

REACTIONS (4)
  - EPSTEIN-BARR VIRUS ASSOCIATED LYMPHOPROLIFERATIVE DISORDER [None]
  - VOMITING [None]
  - DIARRHOEA [None]
  - NAUSEA [None]
